FAERS Safety Report 8328759-1 (Version None)
Quarter: 2012Q2

REPORT INFORMATION
  Report Type: 
  Country: None (occurrence: None)
  Receive Date: 20120502
  Receipt Date: 20120428
  Transmission Date: 20120825
  Serious: Yes (Other)
  Sender: FDA-Public Use
  Company Number: BR-SANOFI-AVENTIS-2012SA030223

PATIENT
  Age: 4 Year
  Sex: Female
  Weight: 22 kg

DRUGS (3)
  1. ALLEGRA [Suspect]
     Route: 048
     Dates: start: 20120428, end: 20120428
  2. ALLEGRA [Suspect]
     Route: 048
     Dates: start: 20120401
  3. BROMPHENIRAMINE/PHENYLEPHRINE [Concomitant]
     Route: 048
     Dates: start: 20120401

REACTIONS (1)
  - ACCIDENTAL DRUG INTAKE BY CHILD [None]
